FAERS Safety Report 7903209-5 (Version None)
Quarter: 2011Q4

REPORT INFORMATION
  Report Type: 
  Country: None (occurrence: None)
  Receive Date: 20111107
  Receipt Date: 20111031
  Transmission Date: 20120403
  Serious: Yes (Hospitalization, Other)
  Sender: FDA-Public Use
  Company Number: 2011SP019419

PATIENT
  Age: 18 Year
  Sex: Female
  Weight: 68.0396 kg

DRUGS (3)
  1. TRAZODONE HCL [Concomitant]
  2. NUVARING [Suspect]
     Indication: CONTRACEPTION
     Dates: end: 20090519
  3. CITALOPRAM HYDROBROMIDE [Concomitant]

REACTIONS (23)
  - OLIGOMENORRHOEA [None]
  - ABDOMINAL PAIN [None]
  - UPPER RESPIRATORY TRACT INFECTION [None]
  - ANXIETY [None]
  - DYSFUNCTIONAL UTERINE BLEEDING [None]
  - BONE PAIN [None]
  - WEIGHT INCREASED [None]
  - INTERNATIONAL NORMALISED RATIO ABNORMAL [None]
  - NAUSEA [None]
  - OVERDOSE [None]
  - HEPATIC STEATOSIS [None]
  - HEPATOCELLULAR INJURY [None]
  - PULMONARY EMBOLISM [None]
  - BACK PAIN [None]
  - FACET JOINT SYNDROME [None]
  - NASOPHARYNGITIS [None]
  - EXOSTOSIS [None]
  - COUGH [None]
  - LUMBAR SPINE FLATTENING [None]
  - DIARRHOEA [None]
  - BRONCHITIS [None]
  - OSTEOSCLEROSIS [None]
  - THORACIC OUTLET SYNDROME [None]
